APPROVED DRUG PRODUCT: ALENDRONATE SODIUM
Active Ingredient: ALENDRONATE SODIUM
Strength: EQ 35MG BASE
Dosage Form/Route: TABLET;ORAL
Application: A075710 | Product #003
Applicant: IMPAX LABORATORIES INC
Approved: Feb 6, 2008 | RLD: No | RS: No | Type: DISCN